FAERS Safety Report 11080629 (Version 2)
Quarter: 2015Q3

REPORT INFORMATION
  Report Type: Report from Study
  Country: ES (occurrence: ES)
  Receive Date: 20150501
  Receipt Date: 20150709
  Transmission Date: 20151125
  Serious: Yes (Hospitalization)
  Sender: FDA-Public Use
  Company Number: ES-ROCHE-1570469

PATIENT
  Age: 54 Year
  Sex: Female
  Weight: 73 kg

DRUGS (5)
  1. OXALIPLATIN. [Suspect]
     Active Substance: OXALIPLATIN
     Indication: COLORECTAL CANCER METASTATIC
     Dosage: OVER 2 HOURS?LAST DOSE PRIOR TO SAE: 165 MG
     Route: 042
     Dates: start: 20150408
  2. 5-FU [Suspect]
     Active Substance: FLUOROURACIL
     Indication: COLORECTAL CANCER METASTATIC
     Dosage: LAST DOSE BEFORE SAE 750 MG
     Route: 040
     Dates: start: 20150408
  3. 5-FU [Suspect]
     Active Substance: FLUOROURACIL
     Dosage: FOR 46 HOURS?LAST DOSE PRIOR TO SAE 4490 MG?DATE OF MOST RECENT DOSE PRIOR TO SAE 10/APR/2015
     Route: 042
     Dates: start: 20150408
  4. BEVACIZUMAB [Suspect]
     Active Substance: BEVACIZUMAB
     Indication: COLORECTAL CANCER METASTATIC
     Dosage: DAY 1?LAST DOSE BEFORE SAE 365 MG
     Route: 042
     Dates: start: 20150408
  5. FOLINIC ACID [Suspect]
     Active Substance: LEUCOVORIN
     Indication: COLORECTAL CANCER METASTATIC
     Dosage: OVER 2 HOURS?LAST DOSE PRIOR TO SAE: 750 MG
     Route: 042
     Dates: start: 20150408

REACTIONS (1)
  - Gastrointestinal toxicity [Recovered/Resolved]

NARRATIVE: CASE EVENT DATE: 20150411
